FAERS Safety Report 25622024 (Version 1)
Quarter: 2025Q3

REPORT INFORMATION
  Report Type: Spontaneous
  Country: US (occurrence: US)
  Receive Date: 20250730
  Receipt Date: 20250730
  Transmission Date: 20251020
  Serious: No
  Sender: Haleon PLC
  Company Number: US-HALEON-2254577

PATIENT
  Sex: Female

DRUGS (2)
  1. TUMS [Interacting]
     Active Substance: CALCIUM CARBONATE
     Indication: Urticaria
  2. ALLEGRA ALLERGY [Interacting]
     Active Substance: FEXOFENADINE HYDROCHLORIDE
     Indication: Urticaria

REACTIONS (5)
  - Lip swelling [Unknown]
  - Product use in unapproved indication [Unknown]
  - Swelling face [Unknown]
  - Drug ineffective for unapproved indication [Unknown]
  - Drug interaction [Unknown]
